FAERS Safety Report 8347522-9 (Version None)
Quarter: 2012Q2

REPORT INFORMATION
  Report Type: 
  Country: None (occurrence: None)
  Receive Date: 20120509
  Receipt Date: 20120502
  Transmission Date: 20120825
  Serious: Yes (Death, Hospitalization)
  Sender: FDA-Public Use
  Company Number: US-UCBSA-056578

PATIENT
  Age: 49 Year
  Sex: Female

DRUGS (2)
  1. CIMZIA [Suspect]
     Indication: RHEUMATOID ARTHRITIS
     Dosage: 200 MG MAINTENANCE
  2. ANTIDEPRESSANTS [Concomitant]
     Dosage: UNKNOWN DOSE

REACTIONS (2)
  - DEATH [None]
  - DEPRESSION [None]
